FAERS Safety Report 7533965-X (Version None)
Quarter: 2011Q2

REPORT INFORMATION
  Report Type: 
  Country: None (occurrence: None)
  Receive Date: 20110608
  Receipt Date: 20060620
  Transmission Date: 20111010
  Serious: Yes (Hospitalization)
  Sender: FDA-Public Use
  Company Number: PHFR2006GB02055

PATIENT
  Sex: Male

DRUGS (1)
  1. CLOZAPINE [Suspect]
     Indication: SCHIZOPHRENIA
     Dosage: UNK UKN, UNK
     Route: 048
     Dates: start: 20040714, end: 20060601

REACTIONS (5)
  - ABDOMINAL PAIN [None]
  - ABDOMINAL DISTENSION [None]
  - INFREQUENT BOWEL MOVEMENTS [None]
  - WEIGHT DECREASED [None]
  - VOMITING [None]
